FAERS Safety Report 17075468 (Version 2)
Quarter: 2019Q4

REPORT INFORMATION
  Report Type: Report from Study
  Country: DE (occurrence: DE)
  Receive Date: 20191126
  Receipt Date: 20191210
  Transmission Date: 20200122
  Serious: Yes (Life-Threatening, Hospitalization, Other)
  Sender: FDA-Public Use
  Company Number: DE-IBIGEN-2019.07630

PATIENT
  Age: 50 Year
  Sex: Female

DRUGS (1)
  1. PIPERACILLIN/TAZOBACTAM [Suspect]
     Active Substance: PIPERACILLIN SODIUM\TAZOBACTAM SODIUM
     Indication: ANTIBIOTIC THERAPY
     Dosage: IV 4.5G THREE TIMES FOR DAY FOR 14 DAYS
     Route: 042

REACTIONS (5)
  - Blood lactate dehydrogenase increased [Unknown]
  - Haemolytic anaemia [Unknown]
  - Drug hypersensitivity [Unknown]
  - Reticulocyte count increased [Unknown]
  - Haemoglobin decreased [Unknown]
